FAERS Safety Report 12712180 (Version 4)
Quarter: 2016Q3

REPORT INFORMATION
  Report Type: Spontaneous
  Country: NL (occurrence: NL)
  Receive Date: 20160902
  Receipt Date: 20160921
  Transmission Date: 20161109
  Serious: Yes (Other)
  Sender: FDA-Public Use
  Company Number: NL-TEVA-688873ISR

PATIENT
  Age: 16 Year
  Sex: Male

DRUGS (2)
  1. RISEDRONATE [Suspect]
     Active Substance: RISEDRONATE SODIUM
     Indication: OSTEOPOROSIS
     Dosage: 35 MG ONCE WEEKLY FOR 2 YEARS FOR ACUMULATIVE DOSE OF 3500MG
     Route: 048
     Dates: start: 2013, end: 2015
  2. PAMIDRONATE [Suspect]
     Active Substance: PAMIDRONATE DISODIUM
     Indication: OSTEOPOROSIS
     Dosage: 1 MG/KG DAILY; 1.0 MG/KG EVERY 4 AND LATER EVERY 6 MONTHS DURING 3 DAYS
     Route: 042
     Dates: start: 2006, end: 2012

REACTIONS (5)
  - Atypical femur fracture [Recovered/Resolved]
  - Fall [Recovered/Resolved]
  - Fibula fracture [Recovered/Resolved]
  - Pain [Recovered/Resolved]
  - Tibia fracture [Recovered/Resolved]

NARRATIVE: CASE EVENT DATE: 2013
